FAERS Safety Report 6131622-8 (Version None)
Quarter: 2009Q1

REPORT INFORMATION
  Report Type: 
  Country: None (occurrence: None)
  Receive Date: 20090325
  Receipt Date: 20081203
  Transmission Date: 20090719
  Serious: Yes (Other)
  Sender: FDA-Public Use
  Company Number: US-BRISTOL-MYERS SQUIBB COMPANY-14430326

PATIENT
  Age: 3 Decade
  Sex: Male

DRUGS (1)
  1. ERBITUX [Suspect]
     Indication: HEAD AND NECK CANCER
     Dosage: INFUSION WAS ALSO RECEIVED ON 18-AUG-2008
     Dates: start: 20080811, end: 20080811

REACTIONS (2)
  - DYSPNOEA [None]
  - FLUSHING [None]
